FAERS Safety Report 15326257 (Version 2)
Quarter: 2019Q2

REPORT INFORMATION
  Report Type: Spontaneous
  Country: US (occurrence: US)
  Receive Date: 20180828
  Receipt Date: 20190531
  Transmission Date: 20190711
  Serious: No
  Sender: FDA-Public Use
  Company Number: US-APOPHARMA USA, INC.-2018AP019236

PATIENT

DRUGS (2)
  1. DEFERASIROX. [Concomitant]
     Active Substance: DEFERASIROX
     Indication: THALASSAEMIA
     Dosage: UNK, UNKNOWN
     Route: 048
  2. FERRIPROX [Suspect]
     Active Substance: DEFERIPRONE
     Indication: THALASSAEMIA
     Dosage: UNK, UNKNOWN
     Route: 048

REACTIONS (1)
  - Tinnitus [Recovered/Resolved]
